FAERS Safety Report 13698459 (Version 1)
Quarter: 2017Q2

REPORT INFORMATION
  Report Type: Spontaneous
  Country: US (occurrence: US)
  Receive Date: 20170628
  Receipt Date: 20170628
  Transmission Date: 20170830
  Serious: No
  Sender: FDA-Public Use
  Company Number: US-BRISTOL-MYERS SQUIBB COMPANY-BMS-2017-056765

PATIENT
  Age: 46 Year
  Sex: Female

DRUGS (6)
  1. SULFORAPHANE [Concomitant]
     Indication: PRODUCT USED FOR UNKNOWN INDICATION
     Dosage: 50 MG, QD IN MORNING
     Route: 065
  2. METFORMIN HYDROCHLORIDE. [Suspect]
     Active Substance: METFORMIN HYDROCHLORIDE
     Indication: RECTAL CANCER STAGE III
     Dosage: 500 MG, QD IN THE EVENING
     Route: 065
     Dates: start: 201509
  3. MELATONIN [Suspect]
     Active Substance: MELATONIN
     Indication: RECTAL CANCER STAGE III
     Dosage: 20 MG, QD AT NIGHT
     Route: 065
  4. COLECALCIFEROL [Suspect]
     Active Substance: CHOLECALCIFEROL
     Indication: RECTAL CANCER STAGE III
     Dosage: 10000 MG, EVERY 3 DAYS
     Route: 065
  5. CURCUMIN [Concomitant]
     Active Substance: CURCUMIN
     Indication: PRODUCT USED FOR UNKNOWN INDICATION
     Dosage: 500 MG, QD IN MORNING
     Route: 065
  6. ASPIRIN                            /00002701/ [Concomitant]
     Active Substance: ASPIRIN
     Indication: PRODUCT USED FOR UNKNOWN INDICATION
     Dosage: 81 MG, QD IN MORNING
     Route: 065

REACTIONS (2)
  - Product use in unapproved indication [Unknown]
  - Fatigue [Unknown]
